FAERS Safety Report 7288336-0 (Version None)
Quarter: 2011Q1

REPORT INFORMATION
  Report Type: 
  Country: None (occurrence: None)
  Receive Date: 20110211
  Receipt Date: 20110207
  Transmission Date: 20110831
  Serious: Yes (Other)
  Sender: FDA-Public Use
  Company Number: FI-PFIZER INC-2011027488

PATIENT
  Age: 48 Year
  Sex: Male

DRUGS (2)
  1. LYRICA [Suspect]
     Indication: PAIN
     Dosage: 300 MG, 2X/DAY
     Dates: start: 20110101
  2. TRAMAL [Suspect]
     Indication: PAIN
     Dosage: UNK
     Route: 030
     Dates: start: 20110101

REACTIONS (6)
  - HEART RATE ABNORMAL [None]
  - VOMITING [None]
  - MOOD ALTERED [None]
  - BLOOD PRESSURE ABNORMAL [None]
  - EUPHORIC MOOD [None]
  - NAUSEA [None]
